FAERS Safety Report 21463935 (Version 1)
Quarter: 2022Q4

REPORT INFORMATION
  Report Type: Report from Study
  Country: US (occurrence: US)
  Receive Date: 20221017
  Receipt Date: 20221017
  Transmission Date: 20230113
  Serious: Yes (Other)
  Sender: FDA-Public Use
  Company Number: US-BRISTOL-MYERS SQUIBB COMPANY-2022-119119

PATIENT
  Age: 62 Year
  Sex: Male
  Weight: 83.915 kg

DRUGS (1)
  1. REVLIMID [Suspect]
     Active Substance: LENALIDOMIDE
     Indication: Plasma cell myeloma
     Dosage: TAKE 1 CAPSULE DAILY FOR 3 WEEKS, THEN 1 WEEK OFF
     Route: 065
     Dates: start: 202102

REACTIONS (3)
  - Guillain-Barre syndrome [Unknown]
  - Asthenia [Unknown]
  - Hypermetabolism [Unknown]
